FAERS Safety Report 5698439-X (Version None)
Quarter: 2008Q2

REPORT INFORMATION
  Report Type: 
  Country: None (occurrence: None)
  Receive Date: 20080403
  Receipt Date: 20080320
  Transmission Date: 20081010
  Serious: Yes (Other)
  Sender: FDA-Public Use
  Company Number: 2008000641

PATIENT
  Age: 58 Year
  Sex: Female

DRUGS (9)
  1. ERLOTINIB (ERLOTINIB HCL) (TABLET) (ERLOTINIB HCL) [Suspect]
     Indication: LUNG ADENOCARCINOMA
     Dosage: 150 MG, QD, ORAL
     Route: 048
     Dates: start: 20080109, end: 20080210
  2. ZANTAC [Concomitant]
  3. LASIX [Concomitant]
  4. ALDACTONE [Concomitant]
  5. RIZE (CLOTIAZEPAM) [Concomitant]
  6. DEPAS (ETIZOLAM) [Concomitant]
  7. ISOSORBIDE (ISOSORBIDE) [Concomitant]
  8. GASMOTIN (MOSAPRIDE CITRATE) [Concomitant]
  9. AVELOX [Concomitant]

REACTIONS (4)
  - ANAEMIA [None]
  - GASTROINTESTINAL HAEMORRHAGE [None]
  - MELAENA [None]
  - STRESS [None]
